FAERS Safety Report 13582951 (Version 1)
Quarter: 2017Q2

REPORT INFORMATION
  Report Type: Spontaneous
  Country: US (occurrence: US)
  Receive Date: 20170525
  Receipt Date: 20170525
  Transmission Date: 20170830
  Serious: Yes (Other)
  Sender: FDA-Public Use
  Company Number: US-TARO-2017TAR00340

PATIENT
  Sex: Female

DRUGS (3)
  1. VIMPAT [Suspect]
     Active Substance: LACOSAMIDE
  2. KEPPRA [Suspect]
     Active Substance: LEVETIRACETAM
  3. CARBAMAZEPINE EXTENDED RELEASE [Suspect]
     Active Substance: CARBAMAZEPINE

REACTIONS (3)
  - Mood altered [Unknown]
  - Balance disorder [Unknown]
  - Amnesia [Unknown]
